FAERS Safety Report 9692582 (Version 1)
Quarter: 2013Q4

REPORT INFORMATION
  Report Type: Spontaneous
  Country: US (occurrence: None)
  Receive Date: 20131115
  Receipt Date: 20131115
  Transmission Date: 20140711
  Serious: Yes (Life-Threatening)
  Sender: FDA-Public Use
  Company Number: None

PATIENT
  Age: 50 Year
  Sex: Male

DRUGS (3)
  1. INCIVEK [Suspect]
     Indication: HEPATITIS C
     Dosage: [2]  375MG TABS 3X/DAY
     Dates: start: 20130920
  2. PEGASYS [Suspect]
     Dosage: 180MCG  SQ  WKLY
     Route: 058
  3. IBUPROFEN [Concomitant]

REACTIONS (2)
  - Chest pain [None]
  - Dyspnoea [None]
